FAERS Safety Report 10704067 (Version 2)
Quarter: 2020Q3

REPORT INFORMATION
  Report Type: Spontaneous
  Country: IT (occurrence: IT)
  Receive Date: 20150112
  Receipt Date: 20200708
  Transmission Date: 20201102
  Serious: Yes (Other)
  Sender: FDA-Public Use
  Company Number: PHHY2015IT001302

PATIENT
  Age: 33 Year
  Sex: Male

DRUGS (6)
  1. BUPROPION. [Interacting]
     Active Substance: BUPROPION
     Dosage: 200 MG, QD
     Route: 065
  2. FLUOXETINE [Suspect]
     Active Substance: FLUOXETINE HYDROCHLORIDE
     Indication: DEPRESSION
     Dosage: 20 MG, QD
     Route: 065
  3. BUPROPION. [Interacting]
     Active Substance: BUPROPION
     Indication: DEPRESSION
     Dosage: 150 MG, QD
     Route: 065
  4. CLOZAPINE. [Suspect]
     Active Substance: CLOZAPINE
     Indication: SCHIZOPHRENIA
     Dosage: 500 MG, QD
     Route: 065
  5. BUPROPION. [Interacting]
     Active Substance: BUPROPION
     Dosage: 150 MG, QD
     Route: 065
  6. CLOZAPINE. [Interacting]
     Active Substance: CLOZAPINE
     Dosage: 200 MG, QD
     Route: 065

REACTIONS (18)
  - Drug level increased [Recovering/Resolving]
  - Salivary hypersecretion [Unknown]
  - Partial seizures [Recovered/Resolved]
  - Sedation [Recovered/Resolved]
  - Therapeutic response decreased [Unknown]
  - Depressed mood [Recovering/Resolving]
  - Hallucination [Recovered/Resolved]
  - Increased appetite [Recovered/Resolved]
  - Drug ineffective [Unknown]
  - Depression [Recovering/Resolving]
  - Apathy [Recovering/Resolving]
  - Tachycardia [Recovered/Resolved]
  - Hypotension [Recovered/Resolved]
  - Constipation [Recovered/Resolved]
  - Vision blurred [Recovering/Resolving]
  - Visual impairment [Recovered/Resolved]
  - Drooling [Not Recovered/Not Resolved]
  - Drug interaction [Unknown]
